FAERS Safety Report 24780779 (Version 1)
Quarter: 2024Q4

REPORT INFORMATION
  Report Type: Spontaneous
  Country: FR (occurrence: FR)
  Receive Date: 20241227
  Receipt Date: 20241227
  Transmission Date: 20250115
  Serious: Yes (Other)
  Sender: UCB
  Company Number: None

PATIENT
  Age: 66 Year
  Sex: Female
  Weight: 87 kg

DRUGS (1)
  1. ZILUCOPLAN [Suspect]
     Active Substance: ZILUCOPLAN
     Indication: Muscular weakness
     Dosage: 1 DOSAGE FORM, ONCE DAILY (QD)
     Route: 058
     Dates: start: 20240703, end: 20240703

REACTIONS (1)
  - Hepatic enzyme abnormal [Recovering/Resolving]

NARRATIVE: CASE EVENT DATE: 20241001
